FAERS Safety Report 18050558 (Version 2)
Quarter: 2020Q3

REPORT INFORMATION
  Report Type: Spontaneous
  Country: CN (occurrence: CN)
  Receive Date: 20200721
  Receipt Date: 20200730
  Transmission Date: 20201103
  Serious: Yes (Hospitalization, Other)
  Sender: FDA-Public Use
  Company Number: CN-ASTRAZENECA-2020SE87332

PATIENT
  Age: 66 Year
  Sex: Female

DRUGS (1)
  1. IRESSA [Suspect]
     Active Substance: GEFITINIB
     Indication: NON-SMALL CELL LUNG CANCER
     Route: 048
     Dates: start: 201812

REACTIONS (6)
  - Sensory loss [Not Recovered/Not Resolved]
  - Dizziness [Unknown]
  - Cerebral disorder [Unknown]
  - Headache [Not Recovered/Not Resolved]
  - Nerve compression [Unknown]
  - Drug resistance [Unknown]

NARRATIVE: CASE EVENT DATE: 202004
